FAERS Safety Report 21233586 (Version 1)
Quarter: 2022Q3

REPORT INFORMATION
  Report Type: Spontaneous
  Country: US (occurrence: None)
  Receive Date: 20220819
  Receipt Date: 20220819
  Transmission Date: 20221026
  Serious: No
  Sender: FDA-Public Use
  Company Number: US-Eisai Medical Research-EC-2022-118948

PATIENT
  Age: 63 Year
  Sex: Male

DRUGS (16)
  1. PERAMPANEL [Suspect]
     Active Substance: PERAMPANEL
     Indication: Partial seizures
     Route: 048
  2. PERAMPANEL [Suspect]
     Active Substance: PERAMPANEL
     Route: 048
  3. PERAMPANEL [Suspect]
     Active Substance: PERAMPANEL
     Route: 048
  4. PERAMPANEL [Suspect]
     Active Substance: PERAMPANEL
     Route: 048
  5. LEVETIRACETAM [Suspect]
     Active Substance: LEVETIRACETAM
     Indication: Partial seizures
  6. CLONAZEPAM [Suspect]
     Active Substance: CLONAZEPAM
     Indication: Partial seizures
  7. LACOSAMIDE [Suspect]
     Active Substance: LACOSAMIDE
     Indication: Partial seizures
     Dosage: DOSE AND FREQUENCY UNKNOWN
  8. LACOSAMIDE [Suspect]
     Active Substance: LACOSAMIDE
  9. LACOSAMIDE [Suspect]
     Active Substance: LACOSAMIDE
  10. TIAGABINE [Suspect]
     Active Substance: TIAGABINE
     Indication: Partial seizures
  11. TIAGABINE [Suspect]
     Active Substance: TIAGABINE
  12. CANNABIDIOL [Suspect]
     Active Substance: CANNABIDIOL
     Indication: Partial seizures
  13. EPIDIOLEX [Suspect]
     Active Substance: CANNABIDIOL
     Indication: Partial seizures
     Dosage: 20 MG/KG/DAY
  14. VALPROIC ACID [Concomitant]
     Active Substance: VALPROIC ACID
     Indication: Partial seizures
  15. LAMOTRIGINE [Concomitant]
     Active Substance: LAMOTRIGINE
     Indication: Partial seizures
  16. BRIVARACETAM [Concomitant]
     Active Substance: BRIVARACETAM
     Indication: Partial seizures

REACTIONS (10)
  - Somnolence [Recovering/Resolving]
  - Mood altered [Recovering/Resolving]
  - Fall [Recovered/Resolved]
  - Disorientation [Unknown]
  - Tonic convulsion [Recovering/Resolving]
  - Gait disturbance [Recovered/Resolved]
  - Confusional state [Recovered/Resolved]
  - Myoclonus [Unknown]
  - Lethargy [Recovering/Resolving]
  - Seizure [Unknown]
